FAERS Safety Report 6611259-4 (Version None)
Quarter: 2010Q1

REPORT INFORMATION
  Report Type: 
  Country: None (occurrence: None)
  Receive Date: 20100303
  Receipt Date: 20100219
  Transmission Date: 20100710
  Serious: Yes (Other)
  Sender: FDA-Public Use
  Company Number: JP-JNJFOC-20091204682

PATIENT
  Sex: Female
  Weight: 72 kg

DRUGS (5)
  1. DOXORUBICIN HCL [Suspect]
     Indication: OVARIAN CANCER RECURRENT
     Route: 042
  2. DOXORUBICIN HCL [Suspect]
     Route: 042
  3. FERROMIA [Concomitant]
     Route: 048
  4. DEXART [Concomitant]
     Indication: PROPHYLAXIS
     Route: 042
  5. DEXART [Concomitant]
     Route: 042

REACTIONS (2)
  - HYPERTENSION [None]
  - PALMAR-PLANTAR ERYTHRODYSAESTHESIA SYNDROME [None]
